FAERS Safety Report 23129675 (Version 1)
Quarter: 2023Q4

REPORT INFORMATION
  Report Type: Spontaneous
  Country: BE (occurrence: BE)
  Receive Date: 20231031
  Receipt Date: 20231031
  Transmission Date: 20240109
  Serious: Yes (Hospitalization, Other)
  Sender: FDA-Public Use
  Company Number: BE-AMNEAL PHARMACEUTICALS-2023-AMRX-03775

PATIENT
  Age: 49 Year
  Sex: Female

DRUGS (1)
  1. ACYCLOVIR [Suspect]
     Active Substance: ACYCLOVIR
     Indication: Oral herpes
     Dosage: 10 MG/KG/8H
     Route: 042

REACTIONS (2)
  - Glomerulonephritis [Recovered/Resolved]
  - Encephalopathy [Recovered/Resolved]
